FAERS Safety Report 12873682 (Version 1)
Quarter: 2016Q4

REPORT INFORMATION
  Report Type: Spontaneous
  Country: US (occurrence: US)
  Receive Date: 20161021
  Receipt Date: 20161021
  Transmission Date: 20170207
  Serious: Yes (Hospitalization, Other)
  Sender: FDA-Public Use
  Company Number: US-ELI_LILLY_AND_COMPANY-US201610003294

PATIENT
  Age: 83 Year
  Sex: Female

DRUGS (2)
  1. HUMALOG [Suspect]
     Active Substance: INSULIN LISPRO
     Indication: TYPE 2 DIABETES MELLITUS
     Dosage: 18 U, AFTER EVERY MEAL
     Route: 065
  2. LEVEMIR [Concomitant]
     Active Substance: INSULIN DETEMIR

REACTIONS (6)
  - Renal disorder [Unknown]
  - Hypoxia [Unknown]
  - Cardiac failure [Unknown]
  - Urinary tract infection [Recovered/Resolved]
  - Visual acuity reduced [Unknown]
  - Blood glucose increased [Unknown]

NARRATIVE: CASE EVENT DATE: 201610
